FAERS Safety Report 15831826 (Version 1)
Quarter: 2019Q1

REPORT INFORMATION
  Report Type: Spontaneous
  Country: DE (occurrence: DE)
  Receive Date: 20190116
  Receipt Date: 20190116
  Transmission Date: 20190417
  Serious: Yes (Congenital Anomaly)
  Sender: FDA-Public Use
  Company Number: DE-SUN PHARMACEUTICAL INDUSTRIES LTD-2019RR-196108

PATIENT
  Sex: Male
  Weight: 3.63 kg

DRUGS (1)
  1. VENLAFAXINE [Suspect]
     Active Substance: VENLAFAXINE HYDROCHLORIDE
     Indication: BIPOLAR DISORDER
     Dosage: 150 [MG/D ]/ DOSAGE REDUCED STEP BY STEP TO 37.5 MG/D
     Route: 064
     Dates: start: 20171021, end: 20180708

REACTIONS (2)
  - Superior sagittal sinus thrombosis [Recovered/Resolved]
  - Infantile haemangioma [Unknown]
